FAERS Safety Report 5353675-7 (Version None)
Quarter: 2007Q2

REPORT INFORMATION
  Report Type: 
  Country: None (occurrence: None)
  Receive Date: 20070521
  Receipt Date: 20070130
  Transmission Date: 20071010
  Serious: No
  Sender: FDA-Public Use
  Company Number: WAES 0701USA05062

PATIENT
  Age: 63 Year
  Weight: 107.0489 kg

DRUGS (13)
  1. JANUVIA [Suspect]
     Indication: DIABETES MELLITUS NON-INSULIN-DEPENDENT
     Dosage: 100 MG/DAILY/PO
     Route: 048
     Dates: start: 20061106, end: 20070104
  2. ALLEGRA [Concomitant]
  3. DODEX [Concomitant]
  4. DOXASIN [Concomitant]
  5. HYZAAR [Concomitant]
  6. PROTONIX [Concomitant]
  7. TESSALON [Concomitant]
  8. ZOCOR [Concomitant]
  9. ZYRTEC [Concomitant]
  10. METFORMIN HCL [Concomitant]
  11. OMEGA-3 MARINE TRIGLYCERIDES [Concomitant]
  12. VITAMIN E [Concomitant]
  13. MULTI-VITAMINS [Concomitant]

REACTIONS (10)
  - BLOOD GLUCOSE INCREASED [None]
  - COUGH [None]
  - EAR PAIN [None]
  - FACIAL PAIN [None]
  - FATIGUE [None]
  - HEADACHE [None]
  - PAIN IN EXTREMITY [None]
  - PAIN IN JAW [None]
  - SINUS HEADACHE [None]
  - SINUSITIS [None]
